FAERS Safety Report 24937053 (Version 1)
Quarter: 2025Q1

REPORT INFORMATION
  Report Type: Spontaneous
  Country: US (occurrence: None)
  Receive Date: 20250205
  Receipt Date: 20250205
  Transmission Date: 20250408
  Serious: Yes (Disabling)
  Sender: FDA-CTU
  Company Number: None

PATIENT
  Age: 54 Year
  Sex: Female
  Weight: 47.25 kg

DRUGS (3)
  1. PERMETHRIN [Suspect]
     Active Substance: PERMETHRIN
     Indication: Infection parasitic
     Route: 061
  2. Doxicycln [Concomitant]
  3. VITAMINS [Concomitant]
     Active Substance: VITAMINS

REACTIONS (4)
  - Application site swelling [None]
  - Peripheral swelling [None]
  - Pain in extremity [None]
  - Movement disorder [None]

NARRATIVE: CASE EVENT DATE: 20250205
